FAERS Safety Report 4441603-8 (Version None)
Quarter: 2004Q3

REPORT INFORMATION
  Report Type: 
  Country: None (occurrence: None)
  Receive Date: 20040907
  Receipt Date: 20040121
  Transmission Date: 20050211
  Serious: Yes (Hospitalization, Other)
  Sender: FDA-Public Use
  Company Number: 200410948GDDC

PATIENT
  Age: 14 Year
  Sex: Female

DRUGS (5)
  1. ARAVA [Suspect]
     Indication: JUVENILE ARTHRITIS
     Route: 048
     Dates: end: 20040121
  2. TYLENOL [Suspect]
     Dosage: DOSE: UNKNOWN LARGE QUANTITY (}20 TABLETS)
     Route: 048
  3. PREDNISONE [Concomitant]
     Route: 048
     Dates: start: 20030301
  4. NAPROSYN [Concomitant]
     Route: 048
     Dates: start: 20030101
  5. RANITIDINE [Concomitant]
     Route: 048
     Dates: start: 20030101

REACTIONS (18)
  - AMMONIA INCREASED [None]
  - BLOOD POTASSIUM DECREASED [None]
  - BLOOD SODIUM INCREASED [None]
  - COAGULATION FACTOR V LEVEL DECREASED [None]
  - COAGULATION FACTOR VII LEVEL DECREASED [None]
  - DISORIENTATION [None]
  - HAEMATOCRIT DECREASED [None]
  - HEPATIC FAILURE [None]
  - HEPATOTOXICITY [None]
  - INTERNATIONAL NORMALISED RATIO INCREASED [None]
  - OVERDOSE [None]
  - OXYGEN SATURATION DECREASED [None]
  - PCO2 DECREASED [None]
  - PLATELET COUNT INCREASED [None]
  - PO2 INCREASED [None]
  - PROTHROMBIN TIME PROLONGED [None]
  - VOMITING [None]
  - WHITE BLOOD CELL COUNT INCREASED [None]
